FAERS Safety Report 7405390-3 (Version None)
Quarter: 2011Q2

REPORT INFORMATION
  Report Type: 
  Country: None (occurrence: None)
  Receive Date: 20110411
  Receipt Date: 20110406
  Transmission Date: 20111010
  Serious: Yes (Death)
  Sender: FDA-Public Use
  Company Number: PHHY2011TR28601

PATIENT
  Age: 78 Year
  Sex: Female

DRUGS (3)
  1. EXELON [Suspect]
     Indication: DEMENTIA ALZHEIMER'S TYPE
     Dosage: 9 MG (PATCH 5 CM^2)
     Route: 062
  2. EXELON [Suspect]
     Route: 062
  3. DONEPEZIL HCL [Concomitant]
     Dosage: 10 MG, UNK

REACTIONS (2)
  - HEAD DISCOMFORT [None]
  - PARALYSIS [None]
